FAERS Safety Report 5953015-6 (Version None)
Quarter: 2008Q4

REPORT INFORMATION
  Report Type: 
  Country: None (occurrence: None)
  Receive Date: 20081114
  Receipt Date: 20080814
  Transmission Date: 20090506
  Serious: No
  Sender: FDA-Public Use
  Company Number: US-BRISTOL-MYERS SQUIBB COMPANY-14302848

PATIENT
  Age: 47 Year
  Sex: Female

DRUGS (3)
  1. IXEMPRA FOR INJ [Suspect]
     Indication: BREAST CANCER
     Dosage: 1ST DOSE TAKEN 3 WKS AGO FOR 15MG VIAL: NDC# 0015191012, LOT# 7E0098, EXPIRATION DATE 05/2009.
     Route: 042
     Dates: start: 20080101
  2. AMITRIPTYLINE HCL [Concomitant]
  3. XELODA [Concomitant]

REACTIONS (1)
  - PALPITATIONS [None]
